FAERS Safety Report 8775448 (Version 3)
Quarter: 2012Q4

REPORT INFORMATION
  Report Type: Report from Study
  Country: JP (occurrence: JP)
  Receive Date: 20120911
  Receipt Date: 20121015
  Transmission Date: 20130627
  Serious: Yes (Hospitalization)
  Sender: FDA-Public Use
  Company Number: JP-ROCHE-1117881

PATIENT
  Age: 56 Year
  Sex: Female
  Weight: 48.6 kg

DRUGS (12)
  1. TOCILIZUMAB [Suspect]
     Indication: RHEUMATOID ARTHRITIS
     Route: 058
     Dates: start: 20110303
  2. CELECOX [Concomitant]
     Indication: RHEUMATOID ARTHRITIS
     Route: 048
     Dates: start: 20111116
  3. LIPITOR [Concomitant]
     Indication: DYSLIPIDAEMIA
     Route: 048
     Dates: start: 20111019
  4. GLACTIV [Concomitant]
     Indication: GLUCOSE TOLERANCE IMPAIRED
     Route: 048
     Dates: start: 20110113
  5. MUCOSTA [Concomitant]
     Indication: GASTRITIS PROPHYLAXIS
     Route: 048
     Dates: start: 20111116
  6. WARFARIN POTASSIUM [Concomitant]
     Indication: THROMBOSIS PROPHYLAXIS
     Route: 048
     Dates: start: 20110526
  7. BAYASPIRIN [Concomitant]
     Indication: THROMBOSIS PROPHYLAXIS
     Route: 048
  8. NORVASC [Concomitant]
     Indication: HYPERTENSION
     Route: 048
     Dates: start: 20101225
  9. MOHRUS TAPE L [Concomitant]
     Indication: RHEUMATOID ARTHRITIS
     Route: 061
  10. PREDNISOLONE [Concomitant]
     Indication: RHEUMATOID ARTHRITIS
     Route: 048
     Dates: start: 20120821
  11. TOCILIZUMAB [Suspect]
     Indication: RHEUMATOID ARTHRITIS
     Route: 042
     Dates: start: 20100916
  12. PLACEBO [Suspect]
     Indication: RHEUMATOID ARTHRITIS
     Route: 058
     Dates: start: 20100916

REACTIONS (1)
  - Dizziness [Recovered/Resolved]
